FAERS Safety Report 18033912 (Version 1)
Quarter: 2020Q3

REPORT INFORMATION
  Report Type: Report from Study
  Country: IN (occurrence: IN)
  Receive Date: 20200716
  Receipt Date: 20200716
  Transmission Date: 20201103
  Serious: Yes (Death, Hospitalization)
  Sender: FDA-Public Use
  Company Number: NVSC2020IN199372

PATIENT
  Age: 59 Year
  Sex: Female

DRUGS (1)
  1. VYMADA [Suspect]
     Active Substance: SACUBITRIL\VALSARTAN
     Indication: CARDIAC FAILURE
     Dosage: 0.5 DF, BID (TAKING 50 MG HALF BD)
     Route: 048
     Dates: start: 20200120

REACTIONS (2)
  - Myocardial infarction [Fatal]
  - Wrong technique in product usage process [Unknown]

NARRATIVE: CASE EVENT DATE: 20200226
